FAERS Safety Report 5832665-1 (Version None)
Quarter: 2008Q3

REPORT INFORMATION
  Report Type: 
  Country: None (occurrence: None)
  Receive Date: 20080804
  Receipt Date: 20080729
  Transmission Date: 20090109
  Serious: Yes (Death)
  Sender: FDA-Public Use
  Company Number: PHEH2008US06782

PATIENT

DRUGS (1)
  1. RECLAST [Suspect]
     Dosage: 5 MG, UNK
     Dates: start: 20080101

REACTIONS (1)
  - RENAL FAILURE [None]
